FAERS Safety Report 4423598-6 (Version None)
Quarter: 2004Q3

REPORT INFORMATION
  Report Type: 
  Country: None (occurrence: None)
  Receive Date: 20040719
  Receipt Date: 20040322
  Transmission Date: 20050211
  Serious: Yes (Hospitalization, Other)
  Sender: FDA-Public Use
  Company Number: M04-INT-064

PATIENT
  Age: 62 Year
  Sex: Male

DRUGS (4)
  1. INTEGRILIN [Suspect]
     Dosage: 180 MCG/KG (X2), IV BOLUS
     Route: 040
  2. HEPARIN [Concomitant]
  3. ACETYLSALICYLIC ACID [Concomitant]
  4. CLOPIDOGREL [Concomitant]

REACTIONS (2)
  - CORONARY ARTERY SURGERY [None]
  - ISCHAEMIC STROKE [None]
